FAERS Safety Report 18114764 (Version 1)
Quarter: 2020Q3

REPORT INFORMATION
  Report Type: Spontaneous
  Country: KR (occurrence: KR)
  Receive Date: 20200805
  Receipt Date: 20200805
  Transmission Date: 20201103
  Serious: Yes (Hospitalization)
  Sender: FDA-Public Use
  Company Number: KR-ASTRAZENECA-2020SE98357

PATIENT
  Age: 68 Year
  Sex: Male

DRUGS (3)
  1. INCRUSE ELLIPTA [Concomitant]
     Active Substance: UMECLIDINIUM BROMIDE
  2. SYMBICORT [Suspect]
     Active Substance: BUDESONIDE\FORMOTEROL FUMARATE DIHYDRATE
     Dosage: UNKNOWN DOSE AND FREQUENCY UNKNOWN
     Route: 055
  3. DAXAS [Suspect]
     Active Substance: ROFLUMILAST
     Route: 048
     Dates: start: 201612

REACTIONS (3)
  - Chronic obstructive pulmonary disease [Unknown]
  - Nausea [Unknown]
  - Diarrhoea [Unknown]
